FAERS Safety Report 9994663 (Version 1)
Quarter: 2014Q1

REPORT INFORMATION
  Report Type: Spontaneous
  Country: US (occurrence: None)
  Receive Date: 20140307
  Receipt Date: 20140307
  Transmission Date: 20141002
  Serious: Yes (Hospitalization)
  Sender: FDA-Public Use
  Company Number: None

PATIENT
  Age: 76 Year
  Sex: Male
  Weight: 59.3 kg

DRUGS (1)
  1. LEVOTHYROXINE [Suspect]
     Indication: HYPOTHYROIDISM
     Route: 048
     Dates: start: 20120305

REACTIONS (7)
  - Decreased appetite [None]
  - Asthenia [None]
  - Weight decreased [None]
  - Anhedonia [None]
  - Ageusia [None]
  - Hyperthyroidism [None]
  - Atrial fibrillation [None]
